FAERS Safety Report 9243302 (Version 2)
Quarter: 2013Q2

REPORT INFORMATION
  Report Type: Spontaneous
  Country: US (occurrence: US)
  Receive Date: 20130419
  Receipt Date: 20130509
  Transmission Date: 20140414
  Serious: Yes (Hospitalization, Other)
  Sender: FDA-Public Use
  Company Number: US-009507513-1304USA008668

PATIENT
  Age: 53 Year
  Sex: Male

DRUGS (3)
  1. VICTRELIS [Suspect]
     Indication: CHRONIC HEPATITIS C
     Dosage: 800 MG, TID
     Route: 048
     Dates: start: 20121130, end: 20130429
  2. PEGASYS [Suspect]
     Dosage: UNK
     Dates: start: 20121102, end: 20130429
  3. RIBASPHERE [Suspect]
     Dosage: UNK
     Dates: start: 20121102, end: 20130429

REACTIONS (7)
  - Asthma [Unknown]
  - Cough [Recovering/Resolving]
  - Syncope [Unknown]
  - Pancytopenia [Unknown]
  - Lymphadenopathy mediastinal [Unknown]
  - Haemolytic anaemia [Unknown]
  - Cough [Recovering/Resolving]
